FAERS Safety Report 17495544 (Version 8)
Quarter: 2020Q4

REPORT INFORMATION
  Report Type: Spontaneous
  Country: US (occurrence: US)
  Receive Date: 20200304
  Receipt Date: 20201229
  Transmission Date: 20210113
  Serious: Yes (Other)
  Sender: FDA-Public Use
  Company Number: US-PFIZER INC-2019556259

PATIENT
  Age: 74 Year
  Sex: Male
  Weight: 72 kg

DRUGS (16)
  1. FINASTERIDE. [Concomitant]
     Active Substance: FINASTERIDE
     Indication: INCONTINENCE
  2. LOSARTAN. [Concomitant]
     Active Substance: LOSARTAN
     Indication: HYPERTENSION
     Dosage: 50 MG, 1X/DAY
  3. TOVIAZ [Suspect]
     Active Substance: FESOTERODINE FUMARATE
     Dosage: 4 MG, 2X/DAY
     Route: 048
  4. OXYBUTYNIN. [Concomitant]
     Active Substance: OXYBUTYNIN CHLORIDE
     Indication: INCONTINENCE
     Dosage: 10 MG, 1X/DAY
     Dates: start: 2017, end: 202002
  5. METHYLPHENIDATE. [Concomitant]
     Active Substance: METHYLPHENIDATE
     Indication: SLEEP DISORDER
     Dosage: 1.5 MG, 2X/DAY
  6. CIALIS [Concomitant]
     Active Substance: TADALAFIL
     Indication: INCONTINENCE
     Dosage: 5 MG
  7. FAMOTIDINE. [Concomitant]
     Active Substance: FAMOTIDINE
     Indication: GASTROOESOPHAGEAL REFLUX DISEASE
     Dosage: 40 MG, 1X/DAY[20MG TABLETS, 2 TABLETS AT NIGHT]
  8. OMEPRAZOLE. [Concomitant]
     Active Substance: OMEPRAZOLE
     Indication: GASTROOESOPHAGEAL REFLUX DISEASE
     Dosage: 20 MG, 2X/DAY[20MG CAPSULE, 1 TWICE DAILY BEFORE MEAL]
  9. TOVIAZ [Suspect]
     Active Substance: FESOTERODINE FUMARATE
     Indication: URINARY INCONTINENCE
     Dosage: 4 MG, 2X/DAY[4MG TABLET, 1 TABLET AT NOON AND 1 TABLET AT MIDNIGHT BY MOUTH]
     Route: 048
     Dates: start: 202001
  10. GABAPENTIN. [Concomitant]
     Active Substance: GABAPENTIN
     Indication: NEUROPATHY PERIPHERAL
     Dosage: 300 MG, 1X/DAY
  11. TOVIAZ [Suspect]
     Active Substance: FESOTERODINE FUMARATE
     Indication: INCONTINENCE
     Dosage: 4 MG, 2X/DAY (QTY. FOR 90 DAYS: 180)
  12. ALFUZOSIN [Concomitant]
     Active Substance: ALFUZOSIN
     Indication: INCONTINENCE
     Dosage: 10 MG, 1X/DAY
     Dates: start: 2019, end: 202002
  13. TADALAFIL. [Concomitant]
     Active Substance: TADALAFIL
     Indication: INCONTINENCE
     Dosage: 5 MG, 1X/DAY
     Dates: start: 2019, end: 202002
  14. GABAPENTIN. [Concomitant]
     Active Substance: GABAPENTIN
     Dosage: 900 MG, 2X/DAY
  15. FINASTERIDE. [Concomitant]
     Active Substance: FINASTERIDE
     Indication: PROSTATIC DISORDER
  16. FINASTERIDE. [Concomitant]
     Active Substance: FINASTERIDE
     Indication: ALOPECIA
     Dosage: 5 MG, 1X/DAY

REACTIONS (10)
  - Somnolence [Unknown]
  - Neoplasm malignant [Unknown]
  - Urethral haemorrhage [Unknown]
  - Bladder disorder [Unknown]
  - Drug ineffective [Unknown]
  - Fatigue [Unknown]
  - Psychological factor affecting medical condition [Unknown]
  - Urinary incontinence [Unknown]
  - Off label use [Unknown]
  - Quality of life decreased [Unknown]

NARRATIVE: CASE EVENT DATE: 202001
